FAERS Safety Report 25144789 (Version 1)
Quarter: 2025Q2

REPORT INFORMATION
  Report Type: Report from Study
  Country: PK (occurrence: PK)
  Receive Date: 20250401
  Receipt Date: 20250401
  Transmission Date: 20250716
  Serious: Yes (Death, Other)
  Sender: MYLAN
  Company Number: PK-MYLANLABS-2025M1026099

PATIENT
  Sex: Female
  Weight: 54 kg

DRUGS (8)
  1. PRETOMANID [Suspect]
     Active Substance: PRETOMANID
     Indication: Tuberculosis
     Dosage: 200 MILLIGRAM, QD
     Dates: start: 20241112
  2. LINEZOLID [Suspect]
     Active Substance: LINEZOLID
     Indication: Tuberculosis
     Dosage: 600 MILLIGRAM, QD
     Dates: start: 20241112
  3. BEDAQUILINE [Suspect]
     Active Substance: BEDAQUILINE
     Indication: Tuberculosis
     Dosage: 200 MILLIGRAM, 3XW
     Dates: start: 20241112
  4. MOXIFLOXACIN [Suspect]
     Active Substance: MOXIFLOXACIN
     Indication: Tuberculosis
     Dosage: 400 MILLIGRAM, QD
     Dates: start: 20241112
  5. PYRIDOXINE [Concomitant]
     Active Substance: PYRIDOXINE
     Indication: Neuropathy peripheral
     Dosage: 50 MILLIGRAM, QD
     Dates: start: 20241112
  6. METFORMIN HYDROCHLORIDE\SITAGLIPTIN PHOSPHATE [Concomitant]
     Active Substance: METFORMIN HYDROCHLORIDE\SITAGLIPTIN PHOSPHATE
     Indication: Diabetes mellitus
     Dosage: UNK, QD (50+500 MILLIGRAM)
  7. AMLODIPINE AND VALSARTAN [Concomitant]
     Active Substance: AMLODIPINE\VALSARTAN
     Indication: Hypertension
     Dosage: UNK, QD (5MG+50 MILLIGRAM)
  8. MONTELUKAST [Concomitant]
     Active Substance: MONTELUKAST
     Indication: Asthma
     Dosage: 10 MILLIGRAM, QD

REACTIONS (7)
  - Pulmonary embolism [Fatal]
  - Bedridden [Unknown]
  - Fall [Unknown]
  - Peripheral arterial occlusive disease [Unknown]
  - Diabetes mellitus inadequate control [Unknown]
  - Skin ulcer [Unknown]
  - Breast ulceration [Unknown]
